FAERS Safety Report 7042688-5 (Version None)
Quarter: 2010Q4

REPORT INFORMATION
  Report Type: 
  Country: None (occurrence: None)
  Receive Date: 20101013
  Receipt Date: 20100121
  Transmission Date: 20110411
  Serious: No
  Sender: FDA-Public Use
  Company Number: US-ASTRAZENECA-2010SE02853

PATIENT
  Age: 57 Year
  Sex: Female
  Weight: 75.3 kg

DRUGS (7)
  1. SYMBICORT [Suspect]
     Dosage: 320 MCG BID
     Route: 055
  2. SYMBICORT [Suspect]
     Dosage: 320 MCG 1 PUFF FOUR TO FIVE TIMES A DAY
     Route: 055
  3. MEDROL [Concomitant]
  4. CARVEDILOL [Concomitant]
     Indication: HYPERTENSION
  5. LISINOPRIL [Concomitant]
     Indication: HYPERTENSION
  6. CYCLOVENZAPR [Concomitant]
     Indication: MUSCLE SPASMS
  7. CLONAZEPAM [Concomitant]
     Indication: ANXIETY

REACTIONS (2)
  - CHEST DISCOMFORT [None]
  - DYSPNOEA [None]
